FAERS Safety Report 8243771-9 (Version None)
Quarter: 2012Q1

REPORT INFORMATION
  Report Type: 
  Country: None (occurrence: None)
  Receive Date: 20120329
  Receipt Date: 20110916
  Transmission Date: 20120608
  Serious: No
  Sender: FDA-Public Use
  Company Number: US-MYLANLABS-2011S1019417

PATIENT
  Age: 78 Year
  Sex: Female

DRUGS (4)
  1. EMSAM [Suspect]
     Indication: DEPRESSION
     Dosage: QD
     Route: 062
     Dates: start: 20060101
  2. SYNTHROID [Concomitant]
     Indication: THYROID DISORDER
     Route: 048
  3. NORVASC [Concomitant]
     Indication: BLOOD PRESSURE INCREASED
     Route: 048
  4. STEROIDS [Suspect]
     Indication: SPINAL COLUMN STENOSIS
     Route: 008
     Dates: start: 20110101

REACTIONS (2)
  - DRUG INTERACTION [None]
  - SINUSITIS [None]
